FAERS Safety Report 14561352 (Version 2)
Quarter: 2018Q3

REPORT INFORMATION
  Report Type: Spontaneous
  Country: US (occurrence: US)
  Receive Date: 20180222
  Receipt Date: 20180822
  Transmission Date: 20181010
  Serious: No
  Sender: FDA-Public Use
  Company Number: US-PFIZER INC-2018072503

PATIENT
  Age: 70 Year
  Sex: Female
  Weight: 87.98 kg

DRUGS (1)
  1. IBRANCE [Suspect]
     Active Substance: PALBOCICLIB
     Indication: BREAST CANCER METASTATIC
     Dosage: 125 MG, CYCLIC (D1?21 Q28 DAYS )
     Route: 048
     Dates: start: 20180212

REACTIONS (2)
  - Bone pain [Unknown]
  - Fatigue [Unknown]
